FAERS Safety Report 20645597 (Version 1)
Quarter: 2022Q1

REPORT INFORMATION
  Report Type: Spontaneous
  Country: GB (occurrence: GB)
  Receive Date: 20220328
  Receipt Date: 20220328
  Transmission Date: 20220423
  Serious: Yes (Hospitalization)
  Sender: FDA-Public Use
  Company Number: GB-GRUNENTHAL-2022-102002

PATIENT
  Age: 42 Year
  Sex: Female

DRUGS (5)
  1. QUTENZA [Suspect]
     Active Substance: CAPSAICIN
     Indication: Intercostal neuralgia
     Dosage: UNK UNK, QUARTERLY
     Route: 065
     Dates: start: 20211201
  2. ASPIRIN [Concomitant]
     Active Substance: ASPIRIN
     Dosage: 150 MILLIGRAM, 1/DAY
     Route: 065
     Dates: start: 20211117
  3. PROCHLORPERAZINE [Concomitant]
     Active Substance: PROCHLORPERAZINE
     Indication: Vomiting
     Dosage: 5 MILLIGRAM, AS NEEDED
     Route: 065
     Dates: start: 20211108
  4. CYCLIZINE [Concomitant]
     Active Substance: CYCLIZINE
     Indication: Vomiting
     Dosage: 50 MILLIGRAM, AS NEEDED
     Route: 065
     Dates: start: 20211029
  5. ONDANSETRON [Concomitant]
     Active Substance: ONDANSETRON
     Indication: Vomiting
     Dosage: 4 MILLIGRAM, AS NEEDED
     Route: 065
     Dates: start: 20211130

REACTIONS (4)
  - Hyperemesis gravidarum [Unknown]
  - Maternal exposure during pregnancy [Unknown]
  - Feeling hot [Unknown]
  - Discomfort [Unknown]
